FAERS Safety Report 8288558-6 (Version None)
Quarter: 2012Q2

REPORT INFORMATION
  Report Type: 
  Country: None (occurrence: None)
  Receive Date: 20120416
  Receipt Date: 20120321
  Transmission Date: 20120825
  Serious: No
  Sender: FDA-Public Use
  Company Number: US-BAXTER-2012BAX000692

PATIENT
  Sex: Female
  Weight: 67.192 kg

DRUGS (6)
  1. 0.9% SODIUM CHLORIDE INJECTION [Suspect]
     Route: 042
     Dates: start: 20120211, end: 20120211
  2. TYLENOL (CAPLET) [Concomitant]
     Route: 048
     Dates: start: 20120211, end: 20120211
  3. PENICILLIN G POTASSIUM [Suspect]
     Route: 042
     Dates: start: 20120211, end: 20120211
  4. PEPCID [Concomitant]
     Route: 042
     Dates: start: 20120211, end: 20120211
  5. KEFZOL [Concomitant]
     Route: 042
     Dates: start: 20120211, end: 20120211
  6. BICITRA [Concomitant]
     Route: 048
     Dates: start: 20120211, end: 20120211

REACTIONS (2)
  - MATERNAL EXPOSURE DURING PREGNANCY [None]
  - INFUSION SITE PAIN [None]
